FAERS Safety Report 9202131 (Version 1)
Quarter: 2013Q1

REPORT INFORMATION
  Report Type: Spontaneous
  Country: GB (occurrence: None)
  Receive Date: 20130328
  Receipt Date: 20130328
  Transmission Date: 20140127
  Serious: Yes (Other)
  Sender: FDA-Public Use
  Company Number: GB-DEXPHARM-20130119

PATIENT
  Sex: Male

DRUGS (4)
  1. OMEPRAZOLE [Suspect]
     Dosage: 10 MILLIGRAM DAILY, GASTRO-RESISTANT CAPSULES SEP. DOSAGES/INTERVAL: 1 IN 1 DAYS?
     Dates: start: 20130108, end: 20130201
  2. BISOPROLOL FUMARATE [Concomitant]
  3. FLECAINIDE ACETATE [Concomitant]
  4. PREDNISOLONE [Concomitant]

REACTIONS (4)
  - Dry mouth [None]
  - Dizziness [None]
  - Pallor [None]
  - Ventricular tachycardia [None]
